FAERS Safety Report 19775753 (Version 5)
Quarter: 2022Q1

REPORT INFORMATION
  Report Type: Report from Study
  Country: US (occurrence: US)
  Receive Date: 20210902
  Receipt Date: 20220215
  Transmission Date: 20220423
  Serious: Yes (Other)
  Sender: FDA-Public Use
  Company Number: US-ABBVIE-21K-163-4035591-00

PATIENT
  Sex: Female
  Weight: 82.174 kg

DRUGS (10)
  1. HUMIRA [Suspect]
     Active Substance: ADALIMUMAB
     Indication: Crohn^s disease
     Route: 058
     Dates: start: 2017, end: 202101
  2. HUMIRA [Suspect]
     Active Substance: ADALIMUMAB
     Route: 058
     Dates: start: 20210806, end: 2021
  3. HUMIRA [Suspect]
     Active Substance: ADALIMUMAB
     Route: 058
     Dates: start: 2021
  4. HUMIRA [Suspect]
     Active Substance: ADALIMUMAB
     Route: 058
  5. ALENDRONATE [Concomitant]
     Active Substance: ALENDRONATE SODIUM
     Indication: Product used for unknown indication
  6. SYNTHROID [Concomitant]
     Active Substance: LEVOTHYROXINE SODIUM
     Indication: Product used for unknown indication
  7. IRON [Concomitant]
     Active Substance: IRON
     Indication: Supplementation therapy
  8. VITAMIN D3 [Concomitant]
     Active Substance: CHOLECALCIFEROL
     Indication: Supplementation therapy
  9. MODERNA COVID-19 VACCINE [Concomitant]
     Active Substance: ELASOMERAN
     Indication: COVID-19 immunisation
     Route: 030
     Dates: start: 20210506, end: 20210506
  10. MODERNA COVID-19 VACCINE [Concomitant]
     Active Substance: ELASOMERAN
     Route: 030
     Dates: start: 20210603, end: 20210603

REACTIONS (27)
  - Large intestinal stenosis [Not Recovered/Not Resolved]
  - Gastrointestinal inflammation [Not Recovered/Not Resolved]
  - Basedow^s disease [Recovered/Resolved]
  - Asthenia [Not Recovered/Not Resolved]
  - Off label use [Unknown]
  - Gastrointestinal sounds abnormal [Unknown]
  - Dizziness [Recovering/Resolving]
  - SARS-CoV-2 test positive [Unknown]
  - Constipation [Unknown]
  - Feeling cold [Recovered/Resolved]
  - Feeling abnormal [Unknown]
  - Loss of personal independence in daily activities [Unknown]
  - Adverse food reaction [Not Recovered/Not Resolved]
  - Fear of eating [Unknown]
  - Abdominal distension [Unknown]
  - Depressed mood [Unknown]
  - Anxiety [Unknown]
  - Flatulence [Not Recovered/Not Resolved]
  - Abdominal distension [Recovering/Resolving]
  - Insomnia [Not Recovered/Not Resolved]
  - Unevaluable event [Unknown]
  - Crohn^s disease [Recovering/Resolving]
  - Diarrhoea [Not Recovered/Not Resolved]
  - Gastrointestinal sounds abnormal [Unknown]
  - Dehydration [Unknown]
  - Dermatitis allergic [Unknown]
  - Nausea [Not Recovered/Not Resolved]

NARRATIVE: CASE EVENT DATE: 20190101
